FAERS Safety Report 11992205 (Version 1)
Quarter: 2016Q1

REPORT INFORMATION
  Report Type: Spontaneous
  Country: US (occurrence: None)
  Receive Date: 20160202
  Receipt Date: 20160202
  Transmission Date: 20160526
  Serious: No
  Sender: FDA-Public Use
  Company Number: None

PATIENT
  Age: 61 Year
  Sex: Male

DRUGS (5)
  1. NOVOLOG [Suspect]
     Active Substance: INSULIN ASPART
  2. OSENI [Suspect]
     Active Substance: ALOGLIPTIN BENZOATE\PIOGLITAZONE HYDROCHLORIDE
  3. TRICOR [Suspect]
     Active Substance: FENOFIBRATE
  4. GLIPIZIDE. [Suspect]
     Active Substance: GLIPIZIDE
  5. NIASPAN [Suspect]
     Active Substance: NIACIN

REACTIONS (2)
  - Drug ineffective [None]
  - Blood glucose increased [None]
